FAERS Safety Report 19251224 (Version 5)
Quarter: 2021Q3

REPORT INFORMATION
  Report Type: Spontaneous
  Country: US (occurrence: US)
  Receive Date: 20210512
  Receipt Date: 20210703
  Transmission Date: 20211014
  Serious: Yes (Other)
  Sender: FDA-Public Use
  Company Number: US-JNJFOC-20210520439

PATIENT
  Age: 76 Year
  Sex: Male

DRUGS (2)
  1. ZYTIGA [Suspect]
     Active Substance: ABIRATERONE ACETATE
     Indication: NEOPLASM MALIGNANT
     Dosage: 4 X 250
     Route: 048
     Dates: start: 202012, end: 202102
  2. ZYTIGA [Suspect]
     Active Substance: ABIRATERONE ACETATE
     Dosage: STOPPED ON MAY 2 OR MAY 3 RD MAY
     Route: 048
     Dates: start: 20210223

REACTIONS (3)
  - Drug ineffective [Unknown]
  - Prostatic specific antigen increased [Unknown]
  - COVID-19 [Unknown]

NARRATIVE: CASE EVENT DATE: 202102
